FAERS Safety Report 9956489 (Version 2)
Quarter: 2014Q1

REPORT INFORMATION
  Report Type: Report from Study
  Country: US (occurrence: US)
  Receive Date: 20140304
  Receipt Date: 20140304
  Transmission Date: 20141002
  Serious: No
  Sender: FDA-Public Use
  Company Number: US-ABBVIE-12P-163-0997870-00

PATIENT
  Sex: Male

DRUGS (8)
  1. HUMIRA [Suspect]
     Indication: CROHN^S DISEASE
     Route: 058
     Dates: start: 2009
  2. SYNTHROID [Concomitant]
     Indication: PRODUCT USED FOR UNKNOWN INDICATION
  3. SYNTHROID [Concomitant]
  4. SYNTHROID [Concomitant]
     Dosage: 200 MG DAILY FOR SIX DAY, 187.5 MG DAILY FOR ONE DAY EACH WEEK
  5. PREDNISONE [Concomitant]
     Indication: CROHN^S DISEASE
     Route: 048
  6. PENTASA [Concomitant]
     Indication: CROHN^S DISEASE
  7. CALCITRIOL [Concomitant]
     Indication: PRODUCT USED FOR UNKNOWN INDICATION
  8. RHYTHMOL SR [Concomitant]
     Indication: ATRIAL FIBRILLATION

REACTIONS (5)
  - Atrial fibrillation [Unknown]
  - Increased tendency to bruise [Not Recovered/Not Resolved]
  - Haemorrhagic diathesis [Not Recovered/Not Resolved]
  - Tooth disorder [Not Recovered/Not Resolved]
  - Red blood cell count decreased [Unknown]
